FAERS Safety Report 16601945 (Version 9)
Quarter: 2021Q1

REPORT INFORMATION
  Report Type: Report from Study
  Country: US (occurrence: US)
  Receive Date: 20190719
  Receipt Date: 20210219
  Transmission Date: 20210419
  Serious: Yes (Hospitalization)
  Sender: FDA-Public Use
  Company Number: PHEH2019US029728

PATIENT
  Age: 53 Year
  Sex: Female
  Weight: 60.77 kg

DRUGS (7)
  1. TREPROSTINIL. [Suspect]
     Active Substance: TREPROSTINIL
     Indication: PULMONARY ARTERIAL HYPERTENSION
     Dosage: 135 NG/KG/MIN, CONT
     Route: 042
     Dates: start: 20190617
  2. ADCIRCA [Concomitant]
     Active Substance: TADALAFIL
     Indication: PULMONARY ARTERIAL HYPERTENSION
     Dosage: UNK
     Route: 065
  3. ORENITRAM [Suspect]
     Active Substance: TREPROSTINIL
     Indication: PRODUCT USED FOR UNKNOWN INDICATION
     Dosage: UNK
     Route: 065
  4. LETAIRIS [Concomitant]
     Active Substance: AMBRISENTAN
     Indication: PULMONARY ARTERIAL HYPERTENSION
     Dosage: UNK
     Route: 065
  5. TREPROSTINIL. [Suspect]
     Active Substance: TREPROSTINIL
     Dosage: 125 NG/KG/MIN, CONT
     Route: 042
  6. AMBRISENTAN [Concomitant]
     Active Substance: AMBRISENTAN
     Indication: PULMONARY ARTERIAL HYPERTENSION
     Dosage: UNK
     Route: 065
  7. TREPROSTINIL. [Suspect]
     Active Substance: TREPROSTINIL
     Dosage: 109 NG/KG/MIN, CONT
     Route: 042

REACTIONS (16)
  - Oedema peripheral [Unknown]
  - Diarrhoea [Unknown]
  - Infusion site haemorrhage [Unknown]
  - Device leakage [Unknown]
  - Fluid retention [Unknown]
  - Nausea [Unknown]
  - Drug intolerance [Unknown]
  - Oedema [Unknown]
  - Haematemesis [Unknown]
  - Dyspnoea [Unknown]
  - Cardiac failure [Unknown]
  - Chest pain [Unknown]
  - Blood potassium decreased [Unknown]
  - Fatigue [Unknown]
  - Localised oedema [Unknown]
  - Hypotension [Unknown]

NARRATIVE: CASE EVENT DATE: 20210111
